FAERS Safety Report 11234512 (Version 2)
Quarter: 2015Q3

REPORT INFORMATION
  Report Type: Spontaneous
  Country: MX (occurrence: MX)
  Receive Date: 20150702
  Receipt Date: 20150715
  Transmission Date: 20151125
  Serious: Yes (Hospitalization, Other)
  Sender: FDA-Public Use
  Company Number: MX-HTU-2015MX011324

PATIENT
  Sex: Female

DRUGS (1)
  1. ONICIT [Suspect]
     Active Substance: PALONOSETRON HYDROCHLORIDE
     Indication: PRODUCT USED FOR UNKNOWN INDICATION
     Route: 065

REACTIONS (5)
  - Bacteraemia [Unknown]
  - Product counterfeit [Unknown]
  - Product contamination microbial [Unknown]
  - Transmission of an infectious agent via product [Unknown]
  - Counterfeit drug administered [None]
